FAERS Safety Report 7554940-5 (Version None)
Quarter: 2011Q2

REPORT INFORMATION
  Report Type: 
  Country: None (occurrence: None)
  Receive Date: 20110617
  Receipt Date: 20110615
  Transmission Date: 20111010
  Serious: Yes (Death)
  Sender: FDA-Public Use
  Company Number: CA-ABBOTT-11P-028-0732388-00

PATIENT
  Sex: Female
  Weight: 89 kg

DRUGS (2)
  1. CORTICOSTEROIDS [Concomitant]
     Indication: PSORIASIS
     Dosage: MID-POTENCY
  2. HUMIRA [Suspect]
     Indication: PSORIASIS
     Route: 058
     Dates: start: 20110323, end: 20110518

REACTIONS (1)
  - SUDDEN DEATH [None]
